FAERS Safety Report 6749051-2 (Version None)
Quarter: 2010Q2

REPORT INFORMATION
  Report Type: 
  Country: None (occurrence: None)
  Receive Date: 20100601
  Receipt Date: 20100430
  Transmission Date: 20101027
  Serious: No
  Sender: FDA-Public Use
  Company Number: US-BAYER-201015026BCC

PATIENT
  Age: 61 Year
  Sex: Female
  Weight: 63 kg

DRUGS (6)
  1. ASPIRIN [Suspect]
     Indication: HERNIA PAIN
     Dosage: UNIT DOSE: 325 MG
     Route: 048
     Dates: start: 19900101, end: 19900101
  2. ALEVE (CAPLET) [Suspect]
     Indication: ARTHRALGIA
     Dosage: CONSUMER TOOK 1 TO 3 CAPLETS DAILY
     Route: 048
     Dates: start: 20100401, end: 20100401
  3. A TO Z SELECT VITAMIN [Concomitant]
  4. CALCIUM AND VITAMIN D [Concomitant]
  5. MUCINEX [Concomitant]
  6. THYROID MEDICATION [Concomitant]

REACTIONS (3)
  - BLOOD PRESSURE INCREASED [None]
  - DIZZINESS [None]
  - OEDEMA PERIPHERAL [None]
